FAERS Safety Report 16914800 (Version 3)
Quarter: 2022Q4

REPORT INFORMATION
  Report Type: Report from Study
  Country: US (occurrence: None)
  Receive Date: 20191014
  Receipt Date: 20221216
  Transmission Date: 20230113
  Serious: Yes (Other)
  Sender: FDA-Public Use
  Company Number: US-ROCHE-2430502

PATIENT
  Age: 48 Year
  Sex: Female

DRUGS (2)
  1. PACLITAXEL [Suspect]
     Active Substance: PACLITAXEL
     Indication: Invasive breast carcinoma
     Dosage: IV OVER 60MIN D1?DATE OF CURRENT TREATMENT ASSIGNMENT DESCRIPTION: 11/DEC/2018
     Route: 042
  2. CARBOPLATIN [Suspect]
     Active Substance: CARBOPLATIN
     Indication: Invasive breast carcinoma
     Dosage: AUC5 IV OVER 30 MIN D1?DATE OF CURRENT TREATMENT ASSIGNMENT DESCRIPTION: 11/DEC/2018
     Route: 042

REACTIONS (1)
  - Syncope [Unknown]
